FAERS Safety Report 7128633-2 (Version None)
Quarter: 2010Q4

REPORT INFORMATION
  Report Type: 
  Country: None (occurrence: None)
  Receive Date: 20101130
  Receipt Date: 20101119
  Transmission Date: 20110411
  Serious: Yes (Other)
  Sender: FDA-Public Use
  Company Number: PHHY2010CA70600

PATIENT
  Sex: Female

DRUGS (2)
  1. SANDOSTATIN LAR [Suspect]
     Indication: METASTATIC CARCINOID TUMOUR
     Dosage: 60 MG EVERY 4 WEEKS
     Route: 030
     Dates: start: 20060101
  2. VENTOLIN [Concomitant]

REACTIONS (6)
  - ASTHENIA [None]
  - BREATH SOUNDS ABNORMAL [None]
  - DECREASED APPETITE [None]
  - DYSPNOEA [None]
  - PALLIATIVE CARE [None]
  - WEIGHT DECREASED [None]
